FAERS Safety Report 8203791-7 (Version None)
Quarter: 2012Q1

REPORT INFORMATION
  Report Type: 
  Country: None (occurrence: None)
  Receive Date: 20120227
  Receipt Date: 20111101
  Transmission Date: 20120608
  Serious: No
  Sender: FDA-Public Use
  Company Number: 340408

PATIENT
  Age: 72 Year
  Sex: Male

DRUGS (2)
  1. JANUVIA [Concomitant]
  2. VICTOZA [Suspect]
     Indication: TYPE 2 DIABETES MELLITUS
     Dosage: 0.6 MG FOR ANOTHER THREE WEEKS, SUBCUTANEOUS
     Route: 058

REACTIONS (6)
  - DIZZINESS [None]
  - DYSPEPSIA [None]
  - FEELING ABNORMAL [None]
  - BLOOD GLUCOSE DECREASED [None]
  - BLOOD GLUCOSE INCREASED [None]
  - BALANCE DISORDER [None]
